FAERS Safety Report 5101981-3 (Version None)
Quarter: 2006Q3

REPORT INFORMATION
  Report Type: 
  Country: None (occurrence: None)
  Receive Date: 20060907
  Receipt Date: 20060825
  Transmission Date: 20061208
  Serious: Yes (Hospitalization, Disabling, Other)
  Sender: FDA-Public Use
  Company Number: 2006105740

PATIENT
  Age: 69 Year
  Sex: Male
  Weight: 89.3586 kg

DRUGS (1)
  1. BEXTRA [Suspect]
     Indication: HERNIA PAIN
     Dosage: 20 MG (20 MG, 1 IN 1 D)
     Dates: start: 20040701, end: 20050114

REACTIONS (2)
  - CEREBROVASCULAR ACCIDENT [None]
  - MYOCARDIAL INFARCTION [None]
